FAERS Safety Report 12728973 (Version 1)
Quarter: 2016Q3

REPORT INFORMATION
  Report Type: Spontaneous
  Country: FR (occurrence: FR)
  Receive Date: 20160909
  Receipt Date: 20160909
  Transmission Date: 20161109
  Serious: Yes (Life-Threatening, Hospitalization)
  Sender: FDA-Public Use
  Company Number: FR-ELI_LILLY_AND_COMPANY-FR201609001582

PATIENT
  Age: 21 Year
  Sex: Male

DRUGS (3)
  1. ZYPADHERA [Suspect]
     Active Substance: OLANZAPINE PAMOATE
     Indication: PSYCHOTIC DISORDER
     Dosage: 405 MG, MONTHLY (1/M)
     Route: 030
     Dates: start: 20150206, end: 20160820
  2. TERCIAN                            /00759301/ [Concomitant]
     Active Substance: CYAMEMAZINE
     Indication: ANXIETY
     Dosage: 3 DF, TID
     Route: 065
  3. TRANXENE T-TAB [Concomitant]
     Active Substance: CLORAZEPATE DIPOTASSIUM
     Dosage: 100 MG, UNKNOWN
     Route: 065

REACTIONS (13)
  - Confusional state [Unknown]
  - Rhabdomyolysis [Unknown]
  - Sedation [Recovered/Resolved]
  - Psychomotor hyperactivity [Unknown]
  - Dysarthria [Recovered/Resolved]
  - Delirium tremens [Recovered/Resolved]
  - Delirium [Unknown]
  - Hypertension [Recovering/Resolving]
  - Urinary retention [Recovering/Resolving]
  - Sinus tachycardia [Unknown]
  - Muscle rigidity [Unknown]
  - Hyperhidrosis [Unknown]
  - Agitation [Unknown]

NARRATIVE: CASE EVENT DATE: 20160820
